FAERS Safety Report 4362518-X (Version None)
Quarter: 2004Q2

REPORT INFORMATION
  Report Type: 
  Country: None (occurrence: None)
  Receive Date: 20040521
  Receipt Date: 20040507
  Transmission Date: 20050107
  Serious: Yes (Hospitalization)
  Sender: FDA-Public Use
  Company Number: ES-AMGEN-US077112

PATIENT
  Sex: Male

DRUGS (4)
  1. ENBREL [Suspect]
     Indication: PSORIATIC ARTHROPATHY
     Route: 058
     Dates: start: 20040331, end: 20040501
  2. METHOTREXATE [Suspect]
     Dates: start: 19971101, end: 20040501
  3. DEFLAZACORT [Concomitant]
     Dates: start: 19970630
  4. ARAVA [Concomitant]
     Dates: start: 20021203, end: 20040331

REACTIONS (4)
  - BONE MARROW DEPRESSION [None]
  - MUCOSAL INFLAMMATION [None]
  - OROPHARYNGITIS FUNGAL [None]
  - RECTAL HAEMORRHAGE [None]
